FAERS Safety Report 20965949 (Version 1)
Quarter: 2022Q2

REPORT INFORMATION
  Report Type: Spontaneous
  Country: US (occurrence: US)
  Receive Date: 20220616
  Receipt Date: 20220616
  Transmission Date: 20220720
  Serious: Yes (Other)
  Sender: FDA-Public Use
  Company Number: US-SA-SAC20220611000078

PATIENT
  Age: 42 Year
  Sex: Female

DRUGS (1)
  1. ZANTAC [Suspect]
     Active Substance: RANITIDINE HYDROCHLORIDE
     Indication: Dyspepsia
     Dosage: 150 MG, QD
     Dates: start: 201201, end: 201712

REACTIONS (12)
  - Appendix cancer metastatic [Not Recovered/Not Resolved]
  - Colon cancer stage IV [Unknown]
  - Small intestine carcinoma stage IV [Unknown]
  - Gastric cancer stage IV [Unknown]
  - Gallbladder cancer stage IV [Unknown]
  - Malignant splenic neoplasm [Unknown]
  - Malignant mesenteric neoplasm [Unknown]
  - Malignant peritoneal neoplasm [Unknown]
  - Bladder cancer stage IV [Unknown]
  - Uterine cancer [Unknown]
  - Ovarian cancer stage IV [Unknown]
  - Metastases to diaphragm [Unknown]

NARRATIVE: CASE EVENT DATE: 20150201
